FAERS Safety Report 4311194-0 (Version None)
Quarter: 2004Q1

REPORT INFORMATION
  Report Type: 
  Country: None (occurrence: None)
  Receive Date: 20040302
  Receipt Date: 20040223
  Transmission Date: 20041129
  Serious: Yes (Hospitalization)
  Sender: FDA-Public Use
  Company Number: US-JNJFOC-20040205026

PATIENT
  Age: 68 Year
  Sex: Female
  Weight: 58.9676 kg

DRUGS (15)
  1. INFLIXIMAB (INFLIXIMAB, RECOMBINANT) LYOPHILIZED POWDER [Suspect]
     Indication: RHEUMATOID ARTHRITIS
     Dosage: 400 MG, INTRAVENOUS
     Route: 042
  2. NAPROXEN [Concomitant]
  3. PREDNISONE [Concomitant]
  4. HYDRALAZINE HCL TAB [Concomitant]
  5. FUROSEMIDE [Concomitant]
  6. ATENOLOL [Concomitant]
  7. RANITIDINE [Concomitant]
  8. HYDROCODONE (HYDROCODONE) [Concomitant]
  9. AMITRIPTYLINE HCL [Concomitant]
  10. ALPRAZOLAM [Concomitant]
  11. ASPIRIN [Concomitant]
  12. VITAMIN E [Concomitant]
  13. VITAMIN D [Concomitant]
  14. XALATAN [Concomitant]
  15. COMBIVENT [Concomitant]

REACTIONS (3)
  - PNEUMONIA [None]
  - RENAL FAILURE [None]
  - RESPIRATORY FAILURE [None]
